FAERS Safety Report 17322218 (Version 1)
Quarter: 2020Q1

REPORT INFORMATION
  Report Type: Spontaneous
  Country: US (occurrence: US)
  Receive Date: 20200127
  Receipt Date: 20200127
  Transmission Date: 20200409
  Serious: Yes (Life-Threatening, Hospitalization, Other)
  Sender: FDA-Public Use
  Company Number: US-DRREDDYS-USA/USA/20/0118979

PATIENT
  Age: 60 Year
  Sex: Male

DRUGS (8)
  1. DIVALPROEX SODIUM /VALPROIC ACID [Suspect]
     Active Substance: DIVALPROEX SODIUM\VALPROIC ACID
     Indication: SCHIZOPHRENIA
     Dosage: DELAYED-RELEASE, CHRONIC THERAPY
     Route: 048
  2. DEPACON [Suspect]
     Active Substance: VALPROATE SODIUM
     Indication: SCHIZOPHRENIA
     Route: 042
  3. TRAZODONE [Concomitant]
     Active Substance: TRAZODONE HYDROCHLORIDE
     Indication: SCHIZOPHRENIA
     Dosage: AT BEDTIME
     Route: 048
  4. LISINOPRIL. [Concomitant]
     Active Substance: LISINOPRIL
     Indication: HYPERTENSION
     Route: 048
  5. CLONAZEPAM. [Concomitant]
     Active Substance: CLONAZEPAM
     Indication: SCHIZOPHRENIA
     Route: 048
  6. CHLORPROMAZINE. [Concomitant]
     Active Substance: CHLORPROMAZINE
     Indication: SCHIZOPHRENIA
     Route: 048
  7. OLANZAPINE TABLETS 2.5 MG, 5 MG, 7.5 MG, 10 MG [Concomitant]
     Active Substance: OLANZAPINE
     Indication: SCHIZOPHRENIA
     Route: 048
  8. MEMANTINE HYDROCHLORIDE. [Concomitant]
     Active Substance: MEMANTINE HYDROCHLORIDE
     Indication: PRODUCT USED FOR UNKNOWN INDICATION
     Route: 048

REACTIONS (4)
  - Hepatic steatosis [Recovered/Resolved]
  - Rhabdomyolysis [Unknown]
  - Hepatic function abnormal [Recovered/Resolved]
  - Acute kidney injury [Recovering/Resolving]
